FAERS Safety Report 6151312-5 (Version None)
Quarter: 2009Q2

REPORT INFORMATION
  Report Type: 
  Country: None (occurrence: None)
  Receive Date: 20090410
  Receipt Date: 20071212
  Transmission Date: 20091009
  Serious: Yes (Other)
  Sender: FDA-Public Use
  Company Number: US-ASTRAZENECA-2007UW21664

PATIENT
  Age: 15474 Day
  Sex: Female
  Weight: 129.3 kg

DRUGS (45)
  1. SEROQUEL [Suspect]
     Indication: ANXIETY
     Dosage: 25 TO 300 MG
     Route: 048
     Dates: start: 20040401
  2. SEROQUEL [Suspect]
     Indication: DEPRESSION
     Dosage: 25 TO 300 MG
     Route: 048
     Dates: start: 20040401
  3. SEROQUEL [Suspect]
     Indication: BIPOLAR DISORDER
     Dosage: 25 TO 300 MG
     Route: 048
     Dates: start: 20040401
  4. SEROQUEL [Suspect]
     Dosage: 25 TO 100 MG
     Route: 048
     Dates: start: 20040420
  5. SEROQUEL [Suspect]
     Dosage: 25 TO 100 MG
     Route: 048
     Dates: start: 20040420
  6. SEROQUEL [Suspect]
     Dosage: 25 TO 100 MG
     Route: 048
     Dates: start: 20040420
  7. CLIMARA [Concomitant]
  8. SYNTHROID [Concomitant]
  9. HYDROCHLOROTHIAZIDE [Concomitant]
  10. FERROUS SULFATE TAB [Concomitant]
  11. BIAXIN [Concomitant]
  12. AVAPRO [Concomitant]
  13. ZOLOFT [Concomitant]
  14. TRILEPTAL [Concomitant]
  15. POTASSIUM CL [Concomitant]
  16. IBUPROFEN [Concomitant]
  17. HYDROCODONE BITARTRATE [Concomitant]
  18. GUAIFENESIN [Concomitant]
  19. RANITIDINE [Concomitant]
  20. ALBUTEROL [Concomitant]
  21. PROPOXY [Concomitant]
  22. PROVENTIL-HFA [Concomitant]
  23. ZITHROMAX [Concomitant]
  24. GEODON [Concomitant]
  25. PROMETHAZINE W/ CODEINE [Concomitant]
  26. AMOXICILLIN AND CLAVULANATE POTASSIUM [Concomitant]
  27. PRILOSEC [Concomitant]
  28. METFORMIN HCL [Concomitant]
  29. GLIMEPIRIDE [Concomitant]
  30. FLUCONAZOLE [Concomitant]
  31. ZMAX [Concomitant]
  32. DIPHENHYDRAMINE HCL [Concomitant]
  33. CLARITHROMYCIN [Concomitant]
  34. TAMIFLU [Concomitant]
  35. LEVAQUIN [Concomitant]
  36. PREDNISONE [Concomitant]
  37. LEVOTHYROXINE SODIUM [Concomitant]
  38. NYSTATIN [Concomitant]
  39. DIOVAN [Concomitant]
  40. NORVASC [Concomitant]
  41. SERTRALINE HCL [Concomitant]
  42. ZOLPIDEM [Concomitant]
  43. CEPHALEXIN [Concomitant]
  44. FAMOTIDINE [Concomitant]
  45. SULFATRIM [Concomitant]

REACTIONS (30)
  - ABDOMINAL DISCOMFORT [None]
  - ABDOMINAL PAIN UPPER [None]
  - ANAEMIA [None]
  - ARTHRALGIA [None]
  - ARTHROPOD BITE [None]
  - BRONCHITIS [None]
  - CARBOHYDRATE METABOLISM DISORDER [None]
  - DERMATITIS [None]
  - DIABETES MELLITUS [None]
  - DIARRHOEA [None]
  - HEADACHE [None]
  - HERPES SIMPLEX [None]
  - HYPERHIDROSIS [None]
  - HYPERTHYROIDISM [None]
  - HYPOGLYCAEMIA [None]
  - INFECTIOUS MONONUCLEOSIS [None]
  - INFLUENZA [None]
  - INSOMNIA [None]
  - METASTASIS [None]
  - NAUSEA [None]
  - NOCTURIA [None]
  - OBESITY [None]
  - OROPHARYNGEAL PAIN [None]
  - RELAPSING FEVER [None]
  - SINUSITIS [None]
  - SUBCUTANEOUS ABSCESS [None]
  - TOXOPLASMOSIS [None]
  - VOMITING [None]
  - VULVOVAGINAL CANDIDIASIS [None]
  - WHEEZING [None]
